FAERS Safety Report 4647666-9 (Version None)
Quarter: 2005Q2

REPORT INFORMATION
  Report Type: 
  Country: None (occurrence: None)
  Receive Date: 20050428
  Receipt Date: 20050420
  Transmission Date: 20051028
  Serious: Yes (Hospitalization)
  Sender: FDA-Public Use
  Company Number: PHFR2005GB01600

PATIENT
  Sex: Female

DRUGS (2)
  1. STEROIDS NOS [Concomitant]
     Route: 065
  2. NEORAL [Suspect]
     Route: 065

REACTIONS (3)
  - AUTOIMMUNE DISORDER [None]
  - IMMUNE SYSTEM DISORDER [None]
  - PLATELET COUNT DECREASED [None]
